FAERS Safety Report 24332847 (Version 10)
Quarter: 2025Q2

REPORT INFORMATION
  Report Type: Spontaneous
  Country: US (occurrence: US)
  Receive Date: 20240918
  Receipt Date: 20250403
  Transmission Date: 20250716
  Serious: No
  Sender: PFIZER
  Company Number: US-PFIZER INC-202400254861

PATIENT
  Age: 59 Year
  Sex: Male
  Weight: 79.38 kg

DRUGS (1)
  1. GENOTROPIN [Suspect]
     Active Substance: SOMATROPIN
     Indication: Hormone therapy
     Dosage: 0.4 MG, DAILY (BY INJECTION)
     Dates: start: 202207

REACTIONS (3)
  - Device mechanical issue [Unknown]
  - Device physical property issue [Unknown]
  - Drug dose omission by device [Unknown]
